FAERS Safety Report 13166346 (Version 2)
Quarter: 2017Q1

REPORT INFORMATION
  Report Type: Spontaneous
  Country: JP (occurrence: JP)
  Receive Date: 20170131
  Receipt Date: 20170216
  Transmission Date: 20170428
  Serious: Yes (Other)
  Sender: FDA-Public Use
  Company Number: JP-ASTRAZENECA-2017SE09110

PATIENT
  Age: 90 Year
  Sex: Male

DRUGS (5)
  1. ANTACIDS [Concomitant]
     Active Substance: UNSPECIFIED INGREDIENT
     Dosage: DOSE UNKNOWN
     Route: 065
  2. IRESSA [Suspect]
     Active Substance: GEFITINIB
     Indication: NON-SMALL CELL LUNG CANCER
     Route: 048
     Dates: start: 201611
  3. IRESSA [Suspect]
     Active Substance: GEFITINIB
     Indication: NON-SMALL CELL LUNG CANCER
     Route: 048
  4. WARFARIN [Suspect]
     Active Substance: WARFARIN
     Dosage: DOSE UNKNOWN
     Route: 048
  5. WARFARIN [Suspect]
     Active Substance: WARFARIN
     Dosage: DOSE UNKNOWN
     Route: 048

REACTIONS (4)
  - Anaemia [Unknown]
  - Oesophageal ulcer [Recovered/Resolved]
  - Cardiac failure [Unknown]
  - Oesophageal intramural haematoma [Unknown]
